FAERS Safety Report 17144243 (Version 1)
Quarter: 2019Q4

REPORT INFORMATION
  Report Type: Spontaneous
  Country: ES (occurrence: ES)
  Receive Date: 20191212
  Receipt Date: 20191212
  Transmission Date: 20200122
  Serious: Yes (Other)
  Sender: FDA-Public Use
  Company Number: ES-MYLANLABS-2019M1120615

PATIENT
  Age: 59 Year
  Sex: Male

DRUGS (10)
  1. OPTOVITE B12 [Concomitant]
     Active Substance: CYANOCOBALAMIN
     Dosage: UNK, 1.000 MICROGRAMOS SOLUCI?N INYECTABLE , 5 AMPOLLAS DE 2 ML
  2. PRAVASTATINA                       /00880401/ [Concomitant]
     Dosage: UNK
  3. RIVOTRIL [Concomitant]
     Active Substance: CLONAZEPAM
     Dosage: UNK
  4. SECALIP [Concomitant]
     Active Substance: FENOFIBRATE
     Dosage: UNK
  5. TROMALYT [Concomitant]
     Active Substance: ASPIRIN
     Dosage: UNK
  6. PAROXETINE. [Suspect]
     Active Substance: PAROXETINE
     Indication: MIXED ANXIETY AND DEPRESSIVE DISORDER
     Dosage: 40 MILLIGRAM, QD,2-0-0
     Route: 048
     Dates: start: 20180710
  7. XADAGO [Interacting]
     Active Substance: SAFINAMIDE MESYLATE
     Indication: PARKINSON^S DISEASE
     Dosage: 50 MILLIGRAM, QD,1-0-0
     Route: 048
     Dates: start: 20190624, end: 20190712
  8. SINEMET PLUS [Interacting]
     Active Substance: CARBIDOPA\LEVODOPA
     Indication: PARKINSON^S DISEASE
     Dosage: 1 DOSAGE FORM, Q8H (25 MG/100 MG,1-1-1)
     Route: 048
     Dates: start: 20180307
  9. VENTOLIN [Concomitant]
     Active Substance: ALBUTEROL SULFATE
     Dosage: UNK
  10. PANTOPRAZOL                        /01263201/ [Concomitant]
     Active Substance: PANTOPRAZOLE
     Dosage: UNK

REACTIONS (2)
  - Impulsive behaviour [Recovering/Resolving]
  - Drug interaction [Unknown]

NARRATIVE: CASE EVENT DATE: 2019
